FAERS Safety Report 6265716-3 (Version None)
Quarter: 2009Q3

REPORT INFORMATION
  Report Type: 
  Country: None (occurrence: None)
  Receive Date: 20090713
  Receipt Date: 20090331
  Transmission Date: 20100115
  Serious: No
  Sender: FDA-Public Use
  Company Number: US-BAYER-200917423NA

PATIENT
  Age: 49 Year
  Sex: Female

DRUGS (2)
  1. MIRENA [Suspect]
     Indication: VAGINAL HAEMORRHAGE
     Dosage: CONTINUOUS
     Route: 015
     Dates: start: 20090309, end: 20090318
  2. B12-VITAMIN [Concomitant]

REACTIONS (2)
  - BACK PAIN [None]
  - GENITAL HAEMORRHAGE [None]
